FAERS Safety Report 8534382-6 (Version None)
Quarter: 2012Q3

REPORT INFORMATION
  Report Type: 
  Country: None (occurrence: None)
  Receive Date: 20120724
  Receipt Date: 20120709
  Transmission Date: 20120928
  Serious: Yes (Hospitalization, Other)
  Sender: FDA-Public Use
  Company Number: US-ARROW-2012-12374

PATIENT
  Age: 56 Year
  Sex: Female

DRUGS (10)
  1. LEVOFLOXACIN [Suspect]
     Indication: PROPHYLAXIS
     Dosage: 250 MG, DAILY
     Route: 065
  2. METRONIDAZOLE [Suspect]
     Indication: CLOSTRIDIUM TEST POSITIVE
     Dosage: 500 MG, Q8H
     Route: 042
  3. PENTAMIDINE ISETHIONATE [Suspect]
     Indication: PROPHYLAXIS
     Dosage: EVERY 28 DAYS
     Route: 055
  4. SULFAMETTHOXAZOLE AND TRIMETHOPRIM [Suspect]
     Indication: PROPHYLAXIS
     Dosage: 1 DOUBLE-STRENGTH TAB BID EVERY MON AND TUES
     Route: 048
  5. ACYCLOVIR [Suspect]
     Indication: PROPHYLAXIS
     Dosage: 400 MG, BID
     Route: 065
  6. PREDNISONE [Suspect]
     Indication: GRAFT VERSUS HOST DISEASE
     Dosage: 10 MG, DAILY
     Route: 065
  7. FLUCONAZOLE [Suspect]
     Indication: PROPHYLAXIS
     Dosage: 100 MG, DAILY
     Route: 065
  8. SULFAMETTHOXAZOLE AND TRIMETHOPRIM [Suspect]
     Indication: PNEUMONIA
     Dosage: HIGH-DOSE
     Route: 042
  9. LINEZOLID [Suspect]
     Indication: URINARY TRACT INFECTION ENTEROCOCCAL
     Dosage: 600 MG, BID
     Route: 065
  10. VANCOMYCIN HCL [Suspect]
     Indication: CLOSTRIDIUM TEST POSITIVE
     Dosage: 125 MG, QID
     Route: 048

REACTIONS (3)
  - URINARY TRACT INFECTION ENTEROCOCCAL [None]
  - CLOSTRIDIAL INFECTION [None]
  - PNEUMOCYSTIS JIROVECI PNEUMONIA [None]
